FAERS Safety Report 10922069 (Version 1)
Quarter: 2015Q1

REPORT INFORMATION
  Report Type: Spontaneous
  Country: ES (occurrence: None)
  Receive Date: 20150312
  Receipt Date: 20150312
  Transmission Date: 20150721
  Serious: Yes (Death)
  Sender: FDA-Public Use
  Company Number: 2269958

PATIENT
  Age: 59 Year
  Sex: Male

DRUGS (10)
  1. AAS [Concomitant]
     Active Substance: ASPIRIN
  2. RAMIPRIL. [Concomitant]
     Active Substance: RAMIPRIL
  3. RALTITREXED DISODIUM [Suspect]
     Active Substance: RALTITREXED
     Indication: ADENOCARCINOMA
     Dates: end: 200904
  4. BISOPROLOL [Concomitant]
     Active Substance: BISOPROLOL
  5. OMEPRAZOLE. [Concomitant]
     Active Substance: OMEPRAZOLE
  6. IRINOTECAN HYDROCHLORIDE. [Suspect]
     Active Substance: IRINOTECAN HYDROCHLORIDE
     Indication: ADENOCARCINOMA
     Dates: end: 200910
  7. BEVACIZUMAB [Suspect]
     Active Substance: BEVACIZUMAB
     Indication: ADENOCARCINOMA
     Dates: end: 200910
  8. CETUXIMAB [Suspect]
     Active Substance: CETUXIMAB
     Indication: ADENOCARCINOMA
     Dosage: CYCLICAL
     Dates: end: 201001
  9. OXALIPLATIN. [Suspect]
     Active Substance: OXALIPLATIN
     Indication: ADENOCARCINOMA
     Dates: end: 200904
  10. ATORVASTATIN [Concomitant]
     Active Substance: ATORVASTATIN

REACTIONS (7)
  - Dyspnoea [None]
  - Abdominal distension [None]
  - Anaemia [None]
  - Disease progression [None]
  - Gastrointestinal haemorrhage [None]
  - Intestinal obstruction [None]
  - Neurotoxicity [None]

NARRATIVE: CASE EVENT DATE: 200907
